FAERS Safety Report 11403775 (Version 2)
Quarter: 2015Q3

REPORT INFORMATION
  Report Type: Spontaneous
  Country: BR (occurrence: BR)
  Receive Date: 20150821
  Receipt Date: 20150907
  Transmission Date: 20151125
  Serious: Yes (Hospitalization, Other)
  Sender: FDA-Public Use
  Company Number: BR-SA-2015SA125240

PATIENT
  Age: 71 Year
  Sex: Female

DRUGS (5)
  1. AAS INFANTIL [Suspect]
     Active Substance: ASPIRIN
     Route: 048
     Dates: end: 20150304
  2. HEPARIN SODIUM. [Suspect]
     Active Substance: HEPARIN SODIUM
     Route: 042
  3. CLEXANE [Suspect]
     Active Substance: ENOXAPARIN SODIUM
     Route: 058
     Dates: start: 20150302, end: 20150304
  4. PLAVIX [Suspect]
     Active Substance: CLOPIDOGREL BISULFATE
     Route: 048
     Dates: end: 20150304
  5. HEPARIN SODIUM. [Suspect]
     Active Substance: HEPARIN SODIUM
     Route: 058
     Dates: start: 20150302, end: 20150302

REACTIONS (8)
  - Gastritis erosive [Unknown]
  - Injection site pain [Not Recovered/Not Resolved]
  - Injection site haemorrhage [Not Recovered/Not Resolved]
  - Intestinal haemorrhage [Recovered/Resolved]
  - Injection site haematoma [Not Recovered/Not Resolved]
  - Haematoma [Not Recovered/Not Resolved]
  - Injection site oedema [Not Recovered/Not Resolved]
  - Oedema [Not Recovered/Not Resolved]

NARRATIVE: CASE EVENT DATE: 20150302
